FAERS Safety Report 6636509-X (Version None)
Quarter: 2010Q1

REPORT INFORMATION
  Report Type: 
  Country: None (occurrence: None)
  Receive Date: 20100226
  Receipt Date: 20090316
  Transmission Date: 20100710
  Serious: Yes (Hospitalization)
  Sender: FDA-Public Use
  Company Number: WAES 0903USA03115

PATIENT
  Age: 35 Year
  Sex: Female

DRUGS (2)
  1. PRINIVIL [Suspect]
     Indication: HYPERTENSION
     Dosage: 20 MG/DAILY/PO
     Route: 048
  2. HYDRODIURIL [Suspect]
     Dosage: PO
     Route: 048

REACTIONS (1)
  - ANGIOEDEMA [None]
